FAERS Safety Report 25787085 (Version 2)
Quarter: 2025Q3

REPORT INFORMATION
  Report Type: Spontaneous
  Country: US (occurrence: US)
  Receive Date: 20250910
  Receipt Date: 20250926
  Transmission Date: 20251020
  Serious: Yes (Hospitalization, Other)
  Sender: BAYER HEALTHCARE LLC
  Company Number: US-BAYER-2025A118991

PATIENT
  Sex: Male

DRUGS (1)
  1. ACETAMINOPHEN\DEXTROMETHORPHAN HYDROBROMIDE [Suspect]
     Active Substance: ACETAMINOPHEN\DEXTROMETHORPHAN HYDROBROMIDE
     Dates: start: 1974

REACTIONS (3)
  - Hallucinations, mixed [Not Recovered/Not Resolved]
  - Drug dependence [Unknown]
  - Drug abuse [None]

NARRATIVE: CASE EVENT DATE: 19740101
